FAERS Safety Report 16714426 (Version 1)
Quarter: 2019Q3

REPORT INFORMATION
  Report Type: Spontaneous
  Country: US (occurrence: US)
  Receive Date: 20190702
  Receipt Date: 20190702
  Transmission Date: 20191004
  Serious: No
  Sender: FDA-Public Use
  Company Number: None

PATIENT
  Age: 47 Year
  Sex: Female

DRUGS (1)
  1. SYMDEKO [Suspect]
     Active Substance: IVACAFTOR\TEZACAFTOR
     Indication: CYSTIC FIBROSIS
     Dosage: 100-150MG/150MG TWICE DAILY BY MOUTH
     Route: 048
     Dates: start: 20190614

REACTIONS (4)
  - Dizziness [None]
  - Headache [None]
  - Blood glucose increased [None]
  - Sinus congestion [None]
